FAERS Safety Report 8145161 (Version 2)
Quarter: 2012Q4

REPORT INFORMATION
  Report Type: Report from Study
  Country: JP (occurrence: JP)
  Receive Date: 20110920
  Receipt Date: 20121002
  Transmission Date: 20130627
  Serious: Yes (Death, Hospitalization, Other)
  Sender: FDA-Public Use
  Company Number: PHHY2011JP82585

PATIENT
  Age: 36 Year
  Sex: Female
  Weight: 48 kg

DRUGS (26)
  1. ICL670A [Suspect]
     Indication: IRON OVERLOAD
     Dosage: 1000 mg, daily
     Route: 048
     Dates: start: 20100922, end: 20110118
  2. SOLU-CORTEF [Suspect]
     Indication: ACUTE MYELOID LEUKAEMIA
     Dosage: 400 mg, daily
     Dates: start: 20110130
  3. URSO [Concomitant]
     Dosage: 600 mg, UNK
     Route: 048
     Dates: start: 20081216, end: 20110210
  4. PARIET [Concomitant]
     Indication: PROPHYLAXIS
     Dosage: 10 mg, UNK
     Route: 048
     Dates: start: 20081219, end: 20110210
  5. GENINAX [Concomitant]
     Indication: PROPHYLAXIS
     Dosage: 400 mg, UNK
     Route: 048
     Dates: start: 20090123, end: 20110104
  6. CELECOXIB [Concomitant]
     Dosage: 400 mg, UNK
     Route: 048
     Dates: start: 20100608, end: 20110119
  7. DUROTEP JANSSEN [Concomitant]
     Dosage: 2.1 mg, UNK
     Route: 062
     Dates: start: 20100608, end: 20101018
  8. OXINORM [Concomitant]
     Dosage: 2.5 mg, UNK
     Route: 048
     Dates: start: 20100608, end: 20110107
  9. FENTANYL CITRATE [Concomitant]
     Dosage: 2 mg, UNK
     Route: 062
     Dates: start: 20101020, end: 20110202
  10. VFEND [Concomitant]
     Indication: PROPHYLAXIS
     Dosage: 300 mg, UNK
     Route: 048
     Dates: start: 20100401, end: 20101222
  11. FLUCONAZOLE [Concomitant]
     Indication: PROPHYLAXIS
     Dosage: 200 mg, UNK
     Route: 048
     Dates: start: 20101222, end: 20110110
  12. ZYVOX [Concomitant]
     Indication: PROPHYLAXIS
     Dosage: 1200 mg, UNK
     Dates: start: 20101229, end: 20110106
  13. MEROPEN [Concomitant]
     Indication: PROPHYLAXIS
     Dosage: 3 g, UNK
     Dates: start: 20110105, end: 20110123
  14. TEICOPLANIN [Concomitant]
     Indication: PROPHYLAXIS
     Dosage: 400 mg, UNK
     Dates: start: 20110107, end: 20110203
  15. MYLOTARG [Concomitant]
     Indication: ACUTE MYELOID LEUKAEMIA
     Dosage: 14 mg, UNK
     Dates: start: 20110113
  16. FUNGUARD [Concomitant]
     Indication: PROPHYLAXIS
     Dosage: 150 mg, UNK
     Dates: start: 20110130
  17. GLOVENIN I [Concomitant]
     Indication: PROPHYLAXIS
     Dosage: 5 g, UNK
     Dates: start: 20110201
  18. GLOVENIN I [Concomitant]
     Dosage: 5 g, UNK
     Dates: end: 20110212
  19. NEUTROGIN [Concomitant]
     Indication: ACUTE MYELOID LEUKAEMIA
     Dosage: 250 ug, UNK
     Dates: start: 20110211
  20. KETALAR [Concomitant]
     Dosage: 50 mg, UNK
     Dates: start: 20110201, end: 20110217
  21. NEUART [Concomitant]
     Indication: ACUTE MYELOID LEUKAEMIA
     Dosage: 1500 IU, UNK
     Dates: start: 20110213, end: 20110214
  22. RED BLOOD CELLS, CONCENTRATED [Concomitant]
     Dosage: 2 units every week
     Dates: start: 20100922, end: 20101006
  23. RED BLOOD CELLS, CONCENTRATED [Concomitant]
     Dosage: 2 to 4 units every week
     Dates: start: 20101102, end: 20110110
  24. RED BLOOD CELLS, CONCENTRATED [Concomitant]
     Dosage: 2 to 4 units every 2 to 3 days
     Dates: start: 20110120, end: 20110215
  25. PLATELETS, HUMAN BLOOD [Concomitant]
     Dosage: 10 to 20 units every week
     Dates: start: 20100922, end: 20110101
  26. PLATELETS, HUMAN BLOOD [Concomitant]
     Dosage: 10 to 20 units every 1 to 3 days
     Dates: start: 20110112

REACTIONS (13)
  - Pericarditis [Unknown]
  - Neoplasm progression [Fatal]
  - Malignant neoplasm progression [Fatal]
  - Pneumonia [Fatal]
  - Pleural effusion [Not Recovered/Not Resolved]
  - Cardiac tamponade [Recovered/Resolved]
  - Fasciitis [Not Recovered/Not Resolved]
  - Coagulopathy [Not Recovered/Not Resolved]
  - Hyperglycaemia [Not Recovered/Not Resolved]
  - Faeces discoloured [Recovering/Resolving]
  - Abnormal faeces [Recovering/Resolving]
  - Blood urea increased [Recovered/Resolved]
  - Pyrexia [Recovered/Resolved]
